FAERS Safety Report 6890063-6 (Version None)
Quarter: 2010Q3

REPORT INFORMATION
  Report Type: 
  Country: None (occurrence: None)
  Receive Date: 20100730
  Receipt Date: 20080725
  Transmission Date: 20110219
  Serious: No
  Sender: FDA-Public Use
  Company Number: US-PFIZER INC-2008063216

PATIENT
  Sex: Female

DRUGS (1)
  1. ATROPINE SULFATE/DIPHENOXYLATE HCL (TABLET) [Suspect]
     Indication: IRRITABLE BOWEL SYNDROME

REACTIONS (1)
  - OPIATES POSITIVE [None]
